FAERS Safety Report 9836711 (Version 4)
Quarter: 2014Q3

REPORT INFORMATION
  Report Type: Spontaneous
  Country: JP (occurrence: JP)
  Receive Date: 20140123
  Receipt Date: 20140813
  Transmission Date: 20150326
  Serious: Yes (Hospitalization)
  Sender: FDA-Public Use
  Company Number: JP-AMGEN-JPNSP2014004836

PATIENT
  Age: 85 Year
  Sex: Female
  Weight: 40 kg

DRUGS (11)
  1. RANMARK [Suspect]
     Active Substance: DENOSUMAB
     Indication: METASTASES TO BONE
     Dosage: 120 MG, QD
     Route: 058
     Dates: start: 20130718, end: 20140108
  2. MAGMITT [Concomitant]
     Active Substance: MAGNESIUM OXIDE
     Dosage: 330 MG, TID
     Route: 048
  3. FUROSEMIDE. [Concomitant]
     Active Substance: FUROSEMIDE
     Dosage: 10 MG, QD
     Route: 048
  4. ONEDURO [Concomitant]
     Active Substance: FENTANYL
     Dosage: 1.7 MG, QD
     Route: 062
  5. MUCOSTA [Concomitant]
     Active Substance: REBAMIPIDE
     Dosage: 100 MG, TID
     Route: 048
  6. CALFINA [Concomitant]
     Dosage: 1 MUG, QD
     Route: 048
  7. TARCEVA [Concomitant]
     Active Substance: ERLOTINIB HYDROCHLORIDE
     Indication: LUNG ADENOCARCINOMA
     Dosage: 100 MG, QD
     Route: 048
     Dates: start: 20130712
  8. CALCIUM LACTATE [Concomitant]
     Active Substance: CALCIUM LACTATE
     Dosage: 1 G, TID
     Route: 048
  9. ORA                                /00273201/ [Concomitant]
     Dosage: 1 ML, QD
     Route: 050
     Dates: start: 20131228, end: 20131228
  10. CONIEL [Concomitant]
     Active Substance: BENIDIPINE HYDROCHLORIDE
     Dosage: 4 MG, QD
     Route: 048
  11. CALCIUM L-ASPARTATE [Concomitant]
     Dosage: 400 MG, TID
     Route: 048

REACTIONS (2)
  - Osteomyelitis [Not Recovered/Not Resolved]
  - Cellulitis [Recovered/Resolved]

NARRATIVE: CASE EVENT DATE: 20131227
